FAERS Safety Report 26198507 (Version 1)
Quarter: 2025Q4

REPORT INFORMATION
  Report Type: Spontaneous
  Country: US (occurrence: US)
  Receive Date: 20251224
  Receipt Date: 20251224
  Transmission Date: 20260117
  Serious: Yes (Other)
  Sender: PFIZER
  Company Number: US-PFIZER INC-202500234333

PATIENT
  Age: 10 Year
  Sex: Male

DRUGS (1)
  1. CYTARABINE [Suspect]
     Active Substance: CYTARABINE
     Indication: Langerhans^ cell histiocytosis
     Dosage: UNK UNK, CYCLIC

REACTIONS (5)
  - Nausea [Unknown]
  - Vomiting [Unknown]
  - Haematotoxicity [Unknown]
  - Off label use [Unknown]
  - Drug ineffective for unapproved indication [Unknown]
